FAERS Safety Report 15743915 (Version 1)
Quarter: 2018Q4

REPORT INFORMATION
  Report Type: Spontaneous
  Country: CN (occurrence: CN)
  Receive Date: 20181220
  Receipt Date: 20181220
  Transmission Date: 20190205
  Serious: Yes (Hospitalization, Other)
  Sender: FDA-Public Use
  Company Number: CN-ROCHE-2228435

PATIENT
  Age: 53 Year
  Sex: Female

DRUGS (47)
  1. XELODA [Suspect]
     Active Substance: CAPECITABINE
     Indication: INVASIVE DUCTAL BREAST CARCINOMA
     Dosage: DAY 1 TO DAY 14
     Route: 065
     Dates: start: 201301, end: 201306
  2. VINORELBINE [Concomitant]
     Active Substance: VINORELBINE\VINORELBINE TARTRATE
     Route: 065
     Dates: start: 20180418, end: 20180527
  3. VINORELBINE [Concomitant]
     Active Substance: VINORELBINE\VINORELBINE TARTRATE
     Route: 065
     Dates: start: 20180617
  4. VINORELBINE [Concomitant]
     Active Substance: VINORELBINE\VINORELBINE TARTRATE
     Route: 065
     Dates: start: 20180710, end: 20180824
  5. GEMCITABINE [Concomitant]
     Active Substance: GEMCITABINE\GEMCITABINE HYDROCHLORIDE
     Indication: METASTASES TO LIVER
     Dosage: DAY 1 AND DAY 8?ENLARGED LUNG METASTASES
     Route: 042
     Dates: start: 20151013, end: 201602
  6. CARBOPLATIN. [Concomitant]
     Active Substance: CARBOPLATIN
     Dosage: AUC=6?NEW SUPRACLAVICULAR LYMPH NODE METASTASIS
     Route: 065
     Dates: start: 20160901
  7. LAPATINIB [Concomitant]
     Active Substance: LAPATINIB
     Route: 065
     Dates: start: 20180617
  8. PACLITAXEL ALBUMIN [Concomitant]
     Active Substance: PACLITAXEL
     Indication: METASTASES TO CENTRAL NERVOUS SYSTEM
     Route: 065
     Dates: start: 20181130, end: 20181207
  9. HERCEPTIN [Suspect]
     Active Substance: TRASTUZUMAB
     Route: 065
     Dates: start: 20170911, end: 20171113
  10. HERCEPTIN [Suspect]
     Active Substance: TRASTUZUMAB
     Route: 065
     Dates: start: 20171121
  11. XELODA [Suspect]
     Active Substance: CAPECITABINE
     Dosage: DAY 1 TO DAY 14
     Route: 065
     Dates: start: 201412, end: 201505
  12. CYCLOPHOSPHAMIDE. [Concomitant]
     Active Substance: CYCLOPHOSPHAMIDE
     Indication: METASTASES TO CENTRAL NERVOUS SYSTEM
     Dosage: HER-2 POSITIVE BREAST INVASIVE DUCTAL CARCINOMA
     Route: 065
     Dates: start: 200912, end: 201005
  13. TAMOXIFEN [Concomitant]
     Active Substance: TAMOXIFEN
     Dosage: ENDOCRINE THERAPY
     Route: 065
     Dates: start: 201103, end: 201301
  14. CARBOPLATIN. [Concomitant]
     Active Substance: CARBOPLATIN
     Dosage: AUC=2
     Route: 065
     Dates: start: 20181130, end: 20181207
  15. HERCEPTIN [Suspect]
     Active Substance: TRASTUZUMAB
     Indication: METASTASES TO LYMPH NODES
     Dosage: FIRST DOSE 8MG/KG, MAINTAIN DOSE 6MG/KG
     Route: 065
     Dates: start: 20160310
  16. HERCEPTIN [Suspect]
     Active Substance: TRASTUZUMAB
     Route: 065
     Dates: start: 20180617
  17. XELODA [Suspect]
     Active Substance: CAPECITABINE
     Dosage: DAY 1 TO DAY 14, 21 DAYS A CYCLE
     Route: 065
     Dates: start: 201306, end: 201411
  18. XELODA [Suspect]
     Active Substance: CAPECITABINE
     Dosage: DAY 1 TO DAY 14, 21 DAYS A CYCLE
     Route: 065
     Dates: start: 20170531, end: 20170814
  19. XELODA [Suspect]
     Active Substance: CAPECITABINE
     Route: 065
     Dates: start: 20180917, end: 20181002
  20. TAXOL [Concomitant]
     Active Substance: PACLITAXEL
     Indication: HER-2 POSITIVE BREAST CANCER
     Route: 065
     Dates: start: 200912, end: 201005
  21. LEUPRORELIN ACETATE [Concomitant]
     Active Substance: LEUPROLIDE ACETATE
     Dosage: ENDOCRINE THERAPY
     Route: 065
     Dates: start: 20150706, end: 201509
  22. DOCETAXEL. [Concomitant]
     Active Substance: DOCETAXEL
     Indication: METASTASES TO CENTRAL NERVOUS SYSTEM
     Dosage: NEW SUPRACLAVICULAR LYMPH NODE METASTASIS
     Route: 065
     Dates: start: 20160310
  23. LIPOSOMAL DOXORUBICIN [Concomitant]
     Active Substance: DOXORUBICIN HYDROCHLORIDE
     Indication: METASTASES TO CENTRAL NERVOUS SYSTEM
     Route: 065
     Dates: start: 20171212
  24. HERCEPTIN [Suspect]
     Active Substance: TRASTUZUMAB
     Indication: METASTASES TO CENTRAL NERVOUS SYSTEM
     Route: 065
     Dates: start: 20160901
  25. HERCEPTIN [Suspect]
     Active Substance: TRASTUZUMAB
     Route: 065
     Dates: start: 20171212
  26. HERCEPTIN [Suspect]
     Active Substance: TRASTUZUMAB
     Route: 065
     Dates: start: 20181130, end: 20181207
  27. XELODA [Suspect]
     Active Substance: CAPECITABINE
     Dosage: DAY 1 TO DAY 14, 21 DAYS A CYCLE
     Route: 065
     Dates: start: 20150527, end: 20150612
  28. VINORELBINE [Concomitant]
     Active Substance: VINORELBINE\VINORELBINE TARTRATE
     Dosage: DAY 1 AND DAY 8
     Route: 065
     Dates: start: 201412, end: 201505
  29. CISPLATIN. [Concomitant]
     Active Substance: CISPLATIN
     Indication: METASTASES TO CENTRAL NERVOUS SYSTEM
     Dosage: DAY 1 TO DAY 5, 21 DAYS A CYCLE
     Route: 065
     Dates: start: 20170119, end: 20170426
  30. LAPATINIB [Concomitant]
     Active Substance: LAPATINIB
     Route: 065
     Dates: start: 20180328
  31. PACLITAXEL. [Concomitant]
     Active Substance: PACLITAXEL
     Indication: METASTASES TO CENTRAL NERVOUS SYSTEM
     Route: 042
     Dates: start: 20170911, end: 20171113
  32. PYROTINIB [Concomitant]
     Route: 065
     Dates: start: 20180917, end: 20181002
  33. HERCEPTIN [Suspect]
     Active Substance: TRASTUZUMAB
     Route: 065
     Dates: start: 20180328
  34. DOCETAXEL. [Concomitant]
     Active Substance: DOCETAXEL
     Route: 065
     Dates: start: 20171121
  35. HERCEPTIN [Suspect]
     Active Substance: TRASTUZUMAB
     Route: 065
     Dates: start: 20180418, end: 20180527
  36. VINORELBINE [Concomitant]
     Active Substance: VINORELBINE\VINORELBINE TARTRATE
     Dosage: DAY 1 AND DAY 8?RIGHT BREAST INVASIVE DUCTAL CARCINOMA
     Route: 065
     Dates: start: 201301, end: 201306
  37. VINORELBINE [Concomitant]
     Active Substance: VINORELBINE\VINORELBINE TARTRATE
     Route: 065
     Dates: start: 20180328
  38. EPIRUBICIN [Concomitant]
     Active Substance: EPIRUBICIN
     Indication: HER-2 POSITIVE BREAST CANCER
     Route: 065
     Dates: start: 200912, end: 201005
  39. EXEMESTANE. [Concomitant]
     Active Substance: EXEMESTANE
     Route: 065
     Dates: start: 20150706, end: 201509
  40. ANASTROZOLE. [Concomitant]
     Active Substance: ANASTROZOLE
     Dosage: ENDOCRINE THERAPY
     Route: 048
     Dates: start: 201609, end: 201701
  41. LAPATINIB [Concomitant]
     Active Substance: LAPATINIB
     Indication: METASTASES TO CENTRAL NERVOUS SYSTEM
     Route: 065
     Dates: start: 20170531, end: 20170814
  42. LAPATINIB [Concomitant]
     Active Substance: LAPATINIB
     Route: 065
     Dates: start: 20181130, end: 20181207
  43. APATINIB [Concomitant]
     Active Substance: APATINIB
     Indication: METASTASES TO CENTRAL NERVOUS SYSTEM
     Route: 048
  44. PYROTINIB [Concomitant]
     Indication: METASTASES TO CENTRAL NERVOUS SYSTEM
     Route: 065
     Dates: start: 20180710, end: 20180824
  45. CYCLOPHOSPHAMIDE. [Concomitant]
     Active Substance: CYCLOPHOSPHAMIDE
     Route: 065
     Dates: start: 20171212
  46. TAXOL [Concomitant]
     Active Substance: PACLITAXEL
     Dosage: DAY 1
     Route: 042
     Dates: start: 20151013, end: 201602
  47. LAPATINIB [Concomitant]
     Active Substance: LAPATINIB
     Route: 065
     Dates: start: 20180418, end: 20180527

REACTIONS (12)
  - Muscular weakness [Not Recovered/Not Resolved]
  - Vomiting [Unknown]
  - Drug resistance [Unknown]
  - Pulmonary mass [Unknown]
  - Generalised oedema [Unknown]
  - Dysphagia [Unknown]
  - Ill-defined disorder [Unknown]
  - Epilepsy [Unknown]
  - Hypoalbuminaemia [Unknown]
  - Speech disorder [Not Recovered/Not Resolved]
  - Platelet count decreased [Unknown]
  - Bone marrow failure [Unknown]

NARRATIVE: CASE EVENT DATE: 20141205
